FAERS Safety Report 5422575-6 (Version None)
Quarter: 2007Q3

REPORT INFORMATION
  Report Type: 
  Country: None (occurrence: None)
  Receive Date: 20070822
  Receipt Date: 20070816
  Transmission Date: 20080115
  Serious: Yes (Disabling, Other)
  Sender: FDA-Public Use
  Company Number: PHFR2007GB01536

PATIENT
  Sex: Female

DRUGS (6)
  1. ZOMETA [Suspect]
     Indication: METASTASES TO BONE
     Dosage: UNK, UNK
     Route: 042
     Dates: start: 20040719, end: 20051128
  2. ZOMETA [Suspect]
     Route: 042
     Dates: start: 20060130, end: 20060804
  3. ZOMETA [Suspect]
     Route: 042
     Dates: start: 20070423
  4. PAMIDRONATE DISODIUM [Suspect]
     Indication: METASTASES TO BONE
     Dosage: UNK, UNK
     Route: 042
     Dates: start: 20010702, end: 20020701
  5. PAMIDRONATE DISODIUM [Suspect]
     Route: 042
     Dates: start: 20070316
  6. LETROZOLE [Concomitant]
     Indication: METASTASES TO BONE
     Route: 065
     Dates: start: 20010101

REACTIONS (7)
  - BREAST CANCER [None]
  - INFECTION [None]
  - METASTASES TO BONE [None]
  - MULTIMORBIDITY [None]
  - NEURALGIA [None]
  - OSTEONECROSIS [None]
  - PAIN IN JAW [None]
